FAERS Safety Report 4569151-5 (Version None)
Quarter: 2005Q1

REPORT INFORMATION
  Report Type: 
  Country: None (occurrence: None)
  Receive Date: 20050203
  Receipt Date: 20050124
  Transmission Date: 20050727
  Serious: Yes (Hospitalization)
  Sender: FDA-Public Use
  Company Number: JP-JNJFOC-20050106221

PATIENT
  Age: 51 Year
  Sex: Male

DRUGS (3)
  1. LEUSTATIN [Suspect]
     Route: 041
  2. PREDNISONE [Concomitant]
  3. AMRUBICIN HYDROCHLORIDE [Concomitant]

REACTIONS (1)
  - ILEUS [None]
